FAERS Safety Report 6558784-2 (Version None)
Quarter: 2010Q1

REPORT INFORMATION
  Report Type: 
  Country: None (occurrence: None)
  Receive Date: 20100129
  Receipt Date: 20100119
  Transmission Date: 20100710
  Serious: Yes (Other)
  Sender: FDA-Public Use
  Company Number: CH-WATSON-2010-00772

PATIENT
  Age: 35 Year
  Sex: Female
  Weight: 52 kg

DRUGS (3)
  1. MORPHINE SULFATE INJ [Suspect]
     Indication: ANALGESIC THERAPY
     Dosage: 2 MG, UNK
     Route: 065
  2. FENTANYL CITRATE [Suspect]
     Indication: ANALGESIC THERAPY
     Dosage: 150 UG, UNK
     Route: 042
  3. FENTANYL CITRATE [Suspect]
     Dosage: 200 UG, UNK
     Route: 040

REACTIONS (2)
  - DYSTONIA [None]
  - PARKINSONISM [None]
